FAERS Safety Report 10060990 (Version 2)
Quarter: 2015Q4

REPORT INFORMATION
  Report Type: Spontaneous
  Country: US (occurrence: US)
  Receive Date: 20140405
  Receipt Date: 20151201
  Transmission Date: 20160304
  Serious: Yes (Other)
  Sender: FDA-Public Use
  Company Number: US-ROCHE-1377902

PATIENT

DRUGS (1)
  1. XOLAIR [Suspect]
     Active Substance: OMALIZUMAB
     Indication: URTICARIA
     Route: 065

REACTIONS (1)
  - Anaphylactic reaction [Unknown]
